FAERS Safety Report 5929807-6 (Version None)
Quarter: 2008Q4

REPORT INFORMATION
  Report Type: 
  Country: None (occurrence: None)
  Receive Date: 20081024
  Receipt Date: 20081013
  Transmission Date: 20090506
  Serious: Yes (Other)
  Sender: FDA-Public Use
  Company Number: GB-PFIZER INC-2008086796

PATIENT
  Age: 60 Year
  Sex: Male

DRUGS (2)
  1. CHAMPIX [Suspect]
     Indication: SMOKING CESSATION THERAPY
     Route: 048
     Dates: start: 20080620, end: 20080818
  2. CHLORAMPHENICOL [Concomitant]
     Route: 047
     Dates: start: 20080619

REACTIONS (1)
  - LOCAL SWELLING [None]
